FAERS Safety Report 5279787-4 (Version None)
Quarter: 2007Q1

REPORT INFORMATION
  Report Type: 
  Country: None (occurrence: None)
  Receive Date: 20061220
  Receipt Date: 20060523
  Transmission Date: 20070707
  Serious: Yes (Life-Threatening)
  Sender: FDA-Public Use
  Company Number: 252658

PATIENT
  Age: 60 Year
  Sex: Female
  Weight: 67.1 kg

DRUGS (1)
  1. NOVOLOG MIX 70/30 [Suspect]
     Indication: DIABETES MELLITUS INSULIN-DEPENDENT
     Dosage: 46 IU, QD, SUBCUTANEOUS
     Route: 058
     Dates: start: 20050501

REACTIONS (1)
  - HYPOGLYCAEMIC COMA [None]
